FAERS Safety Report 4372608-3 (Version None)
Quarter: 2004Q2

REPORT INFORMATION
  Report Type: 
  Country: None (occurrence: None)
  Receive Date: 20040608
  Receipt Date: 20040528
  Transmission Date: 20050107
  Serious: Yes (Other)
  Sender: FDA-Public Use
  Company Number: 200415657GDDC

PATIENT
  Age: 53 Year
  Sex: Male

DRUGS (3)
  1. CEFOTAXIM [Suspect]
     Dosage: DOSE: UNK
  2. ROHYPNOL [Suspect]
     Dosage: DOSE: UNK
  3. PHENYTOIN [Suspect]
     Dosage: DOSE: UNK

REACTIONS (2)
  - SPINAL HAEMATOMA [None]
  - THROMBOCYTOPENIA [None]
